FAERS Safety Report 7132355-1 (Version None)
Quarter: 2010Q4

REPORT INFORMATION
  Report Type: 
  Country: None (occurrence: None)
  Receive Date: 20101202
  Receipt Date: 20101129
  Transmission Date: 20110411
  Serious: Yes (Hospitalization, Other)
  Sender: FDA-Public Use
  Company Number: US-PFIZER INC-US-WYE-H17843510

PATIENT
  Sex: Female
  Weight: 67.1 kg

DRUGS (15)
  1. BLINDED *NO SUBJECT DRUG [Suspect]
     Indication: DEMENTIA ALZHEIMER'S TYPE
     Dosage: VANUTIDE CRIDIFICAR 3 UG AND QS-21 AT 50 UG
     Route: 030
     Dates: start: 20090916, end: 20090916
  2. BLINDED ACC-001 [Suspect]
     Indication: DEMENTIA ALZHEIMER'S TYPE
     Dosage: VANUTIDE CRIDIFICAR 3 UG AND QS-21 AT 50 UG
     Route: 030
     Dates: start: 20090916, end: 20090916
  3. BLINDED ACC-001, QS-21 [Suspect]
     Indication: DEMENTIA ALZHEIMER'S TYPE
     Dosage: VANUTIDE CRIDIFICAR 3 UG AND QS-21 AT 50 UG
     Route: 030
     Dates: start: 20090916, end: 20090916
  4. BLINDED QS-21 [Suspect]
     Indication: DEMENTIA ALZHEIMER'S TYPE
     Dosage: VANUTIDE CRIDIFICAR 3 UG AND QS-21 AT 50 UG
     Route: 030
     Dates: start: 20090916, end: 20090916
  5. BLINDED *NO SUBJECT DRUG [Suspect]
     Dosage: VANUTIDE CRIDIFICAR 3 UG AND QS-21 AT 50 UG
     Route: 030
     Dates: start: 20100317, end: 20100317
  6. BLINDED ACC-001 [Suspect]
     Dosage: VANUTIDE CRIDIFICAR 3 UG AND QS-21 AT 50 UG
     Route: 030
     Dates: start: 20100317, end: 20100317
  7. BLINDED ACC-001, QS-21 [Suspect]
     Dosage: VANUTIDE CRIDIFICAR 3 UG AND QS-21 AT 50 UG
     Route: 030
     Dates: start: 20100317, end: 20100317
  8. BLINDED QS-21 [Suspect]
     Dosage: VANUTIDE CRIDIFICAR 3 UG AND QS-21 AT 50 UG
     Route: 030
     Dates: start: 20100317, end: 20100317
  9. DONEPEZIL HCL [Suspect]
     Indication: DEMENTIA ALZHEIMER'S TYPE
     Dosage: 10 MG, 1X/DAY
     Route: 048
     Dates: start: 20070610
  10. ZOLOFT [Suspect]
     Indication: DEPRESSION
     Dosage: 200 MG, 1X/DAY
     Route: 048
     Dates: start: 20020101, end: 20100901
  11. ZOLOFT [Suspect]
     Dosage: 50 MG, 1X/DAY
     Route: 048
     Dates: start: 20100901
  12. NAMENDA [Suspect]
     Indication: DEMENTIA ALZHEIMER'S TYPE
     Dosage: 10 MG, 1X/DAY
     Route: 048
     Dates: start: 20070101
  13. ENSURE PLUS [Concomitant]
     Dosage: 4 CANS PER DAY
     Route: 048
     Dates: start: 20100901
  14. MEGESTROL [Concomitant]
     Dosage: 625 MG PER 5ML, 1X/DAY
     Route: 048
     Dates: start: 20100830
  15. ESOMEPRAZOLE [Concomitant]
     Dosage: 40 MG, 1X/DAY
     Route: 048
     Dates: start: 20100818

REACTIONS (2)
  - DIARRHOEA [None]
  - GALLBLADDER CANCER [None]
